FAERS Safety Report 9819003 (Version 2)
Quarter: 2014Q1

REPORT INFORMATION
  Report Type: Spontaneous
  Country: IT (occurrence: None)
  Receive Date: 20140113
  Receipt Date: 20140318
  Transmission Date: 20141002
  Serious: Yes (Hospitalization)
  Sender: FDA-Public Use
  Company Number: AUR-APL-2014-00272

PATIENT
  Age: 76 Year
  Sex: Male

DRUGS (7)
  1. CEFTRIAXONE [Suspect]
     Indication: PRODUCT USED FOR UNKNOWN INDICATION
     Dates: start: 20131014, end: 20131016
  2. ZESTORETIC [Suspect]
     Indication: PRODUCT USED FOR UNKNOWN INDICATION
     Dates: start: 20130801, end: 20131016
  3. NORMIX (RIFAXIMIN) [Concomitant]
  4. GARDENALE (PHENOBARBITAL) [Concomitant]
  5. VALIUM (DIAZEPAM) [Concomitant]
  6. TEGRETOL (CARBAMAZEPINE) UNKNOWN [Concomitant]
  7. TRITTICO (TRAZAODONE HYDROCHLORIDE) [Concomitant]

REACTIONS (1)
  - Renal failure acute [None]
